FAERS Safety Report 22108648 (Version 1)
Quarter: 2023Q1

REPORT INFORMATION
  Report Type: Report from Study
  Country: US (occurrence: US)
  Receive Date: 20230317
  Receipt Date: 20230317
  Transmission Date: 20230418
  Serious: Yes (Other)
  Sender: FDA-Public Use
  Company Number: US-MYLANLABS-2023M1027958

PATIENT
  Age: 43 Year
  Sex: Male

DRUGS (8)
  1. DOXORUBICIN [Suspect]
     Active Substance: DOXORUBICIN
     Indication: Plasmablastic lymphoma
     Dosage: 10 MILLIGRAM/SQ. METER, CYCLE; RECEIVED DURING CYCLE 1 AND 2
     Route: 065
  2. DOXORUBICIN [Suspect]
     Active Substance: DOXORUBICIN
     Dosage: 12 MILLIGRAM/SQ. METER, CYCLE; RECEIVED DURING CYCLE 3
     Route: 065
  3. ETOPOSIDE [Suspect]
     Active Substance: ETOPOSIDE
     Indication: Plasmablastic lymphoma
     Dosage: 50 MILLIGRAM/SQ. METER, CYCLE; RECEIVED DURING CYCLE 1 AND 2
     Route: 065
  4. ETOPOSIDE [Suspect]
     Active Substance: ETOPOSIDE
     Dosage: 60 MILLIGRAM/SQ. METER, CYCLE; RECEIVED DURING CYCLE 3
     Route: 065
  5. METHOTREXATE [Suspect]
     Active Substance: METHOTREXATE
     Indication: Plasmablastic lymphoma
     Dosage: 12 MILLIGRAM, CYCLE; RECEIVED DURING CYCLE 1-3
     Route: 037
  6. VINCRISTINE [Suspect]
     Active Substance: VINCRISTINE
     Indication: Plasmablastic lymphoma
     Dosage: 0.4 MILLIGRAM/SQ. METER, CYCLE; RECEIVED DURING CYCLE 1-3
     Route: 065
  7. CYCLOPHOSPHAMIDE [Suspect]
     Active Substance: CYCLOPHOSPHAMIDE
     Indication: Plasmablastic lymphoma
     Dosage: 375 MILLIGRAM/SQ. METER, CYCLE; RECEIVED DURING CYCLE 1-3
     Route: 065
  8. DARATUMUMAB [Suspect]
     Active Substance: DARATUMUMAB
     Indication: Plasmablastic lymphoma
     Dosage: 16 MILLIGRAM/KILOGRAM, CYCLE; RECEIVED ON DAY 1 DURING CYCLE....
     Route: 065

REACTIONS (3)
  - Parainfluenzae virus infection [Unknown]
  - Respiratory syncytial virus infection [Unknown]
  - Chronic obstructive pulmonary disease [Unknown]
